FAERS Safety Report 12233283 (Version 1)
Quarter: 2016Q2

REPORT INFORMATION
  Report Type: Spontaneous
  Country: EG (occurrence: EG)
  Receive Date: 20160404
  Receipt Date: 20160404
  Transmission Date: 20160815
  Serious: Yes (Other)
  Sender: FDA-Public Use
  Company Number: EG-HOSPIRA-3228111

PATIENT
  Age: 63 Year
  Sex: Female

DRUGS (1)
  1. CALCIUM FOLINATE [Suspect]
     Active Substance: LEUCOVORIN CALCIUM
     Indication: COLON CANCER
     Route: 042

REACTIONS (2)
  - Chest discomfort [Unknown]
  - Dyspnoea [Unknown]
